FAERS Safety Report 9692953 (Version 1)
Quarter: 2013Q4

REPORT INFORMATION
  Report Type: Spontaneous
  Country: US (occurrence: US)
  Receive Date: 20131118
  Receipt Date: 20131118
  Transmission Date: 20140711
  Serious: No
  Sender: FDA-Public Use
  Company Number: US-GLAXOSMITHKLINE-A1044620A

PATIENT
  Age: 83 Year
  Sex: Female

DRUGS (1)
  1. COREG CR [Suspect]
     Indication: CARDIAC FAILURE
     Dosage: 20MG UNKNOWN
     Dates: start: 201003

REACTIONS (1)
  - Malaise [Unknown]
